FAERS Safety Report 7441523-0 (Version None)
Quarter: 2011Q2

REPORT INFORMATION
  Report Type: 
  Country: None (occurrence: None)
  Receive Date: 20110425
  Receipt Date: 20110425
  Transmission Date: 20111010
  Serious: Yes (Other)
  Sender: FDA-Public Use
  Company Number: None

PATIENT
  Age: 93 Year
  Sex: Female

DRUGS (1)
  1. FOSAMAX PLUS D [Suspect]
     Indication: OSTEONECROSIS
     Dosage: 1 TAB QWEEK PO
     Route: 048
     Dates: start: 20080402, end: 20110214

REACTIONS (4)
  - OEDEMA MUCOSAL [None]
  - OSTEONECROSIS OF JAW [None]
  - ORAL PAIN [None]
  - GINGIVAL SWELLING [None]
